FAERS Safety Report 11717283 (Version 2)
Quarter: 2016Q2

REPORT INFORMATION
  Report Type: Spontaneous
  Country: US (occurrence: US)
  Receive Date: 20151109
  Receipt Date: 20160411
  Transmission Date: 20160815
  Serious: Yes (Other)
  Sender: FDA-Public Use
  Company Number: US-BRISTOL-MYERS SQUIBB COMPANY-BMS-2015-077201

PATIENT
  Sex: Male

DRUGS (6)
  1. LOSARTAN. [Suspect]
     Active Substance: LOSARTAN
     Indication: BLOOD PRESSURE MEASUREMENT
     Dosage: 100 MG, QD
     Route: 065
  2. LIPITOR [Suspect]
     Active Substance: ATORVASTATIN CALCIUM
     Indication: BLOOD CHOLESTEROL
     Dosage: 20 MG, QD
     Route: 065
  3. HYDROCHLOROTHIAZIDE. [Suspect]
     Active Substance: HYDROCHLOROTHIAZIDE
     Indication: BLOOD PRESSURE MEASUREMENT
     Dosage: 25 MG, QD
     Route: 065
  4. ACETYL-L-CARNITINE [Concomitant]
     Indication: PRODUCT USED FOR UNKNOWN INDICATION
     Dosage: UNK
     Route: 065
  5. ELIQUIS [Suspect]
     Active Substance: APIXABAN
     Indication: CEREBROVASCULAR ACCIDENT PROPHYLAXIS
     Dosage: 5 MG, UNK
     Route: 065
  6. LEXAPRO [Suspect]
     Active Substance: ESCITALOPRAM OXALATE
     Indication: DEPRESSION
     Dosage: 10 MG, QD
     Route: 065

REACTIONS (1)
  - Conjunctival haemorrhage [Recovered/Resolved]
